FAERS Safety Report 9320649 (Version 3)
Quarter: 2013Q3

REPORT INFORMATION
  Report Type: Spontaneous
  Country: US (occurrence: US)
  Receive Date: 20130531
  Receipt Date: 20130711
  Transmission Date: 20140515
  Serious: Yes (Hospitalization)
  Sender: FDA-Public Use
  Company Number: US-BIOGENIDEC-2013BI046927

PATIENT
  Sex: Male

DRUGS (1)
  1. TYSABRI [Suspect]
     Indication: MULTIPLE SCLEROSIS
     Route: 042
     Dates: start: 20120510, end: 20130211

REACTIONS (14)
  - Pneumonia aspiration [Unknown]
  - Leg amputation [Not Recovered/Not Resolved]
  - Mobility decreased [Unknown]
  - Decubitus ulcer [Unknown]
  - Vein disorder [Unknown]
  - Visual acuity reduced [Unknown]
  - Peripheral vascular disorder [Unknown]
  - Coordination abnormal [Unknown]
  - Penis injury [Unknown]
  - Musculoskeletal disorder [Unknown]
  - Pain in extremity [Unknown]
  - Immune system disorder [Not Recovered/Not Resolved]
  - Gangrene [Unknown]
  - General symptom [Not Recovered/Not Resolved]
